FAERS Safety Report 5338374-X (Version None)
Quarter: 2007Q2

REPORT INFORMATION
  Report Type: 
  Country: None (occurrence: None)
  Receive Date: 20070322
  Receipt Date: 20060509
  Transmission Date: 20071010
  Serious: Yes (Other)
  Sender: FDA-Public Use
  Company Number: 200611602BCC

PATIENT
  Age: 54 Year
  Sex: Male
  Weight: 127.0072 kg

DRUGS (1)
  1. ALEVE (CAPLET) [Suspect]
     Indication: ARTHRITIS
     Dosage: 440-880 MG, ORAL
     Route: 048
     Dates: start: 20060401, end: 20060411

REACTIONS (2)
  - ARTHRITIS [None]
  - HAEMATOCHEZIA [None]
